FAERS Safety Report 5379039-8 (Version None)
Quarter: 2007Q3

REPORT INFORMATION
  Report Type: 
  Country: None (occurrence: None)
  Receive Date: 20070705
  Receipt Date: 20070702
  Transmission Date: 20080115
  Serious: Yes (Death, Other)
  Sender: FDA-Public Use
  Company Number: IL-BRISTOL-MYERS SQUIBB COMPANY-13832597

PATIENT
  Age: 20 Year
  Sex: Male

DRUGS (6)
  1. CARBOPLATIN [Suspect]
     Indication: CHOROID PLEXUS CARCINOMA
     Dates: start: 20000501
  2. CISPLATIN [Suspect]
     Indication: CHOROID PLEXUS CARCINOMA
  3. CYCLOPHOSPHAMIDE [Suspect]
     Indication: CHOROID PLEXUS CARCINOMA
  4. ETOPOSIDE [Suspect]
     Indication: CHOROID PLEXUS CARCINOMA
  5. VINCRISTINE [Suspect]
     Indication: CHOROID PLEXUS CARCINOMA
  6. RADIOTHERAPY [Suspect]
     Indication: CHOROID PLEXUS CARCINOMA

REACTIONS (1)
  - GLIOBLASTOMA [None]
